FAERS Safety Report 9377295 (Version 2)
Quarter: 2013Q3

REPORT INFORMATION
  Report Type: Spontaneous
  Country: US (occurrence: US)
  Receive Date: 20130701
  Receipt Date: 20130827
  Transmission Date: 20140515
  Serious: No
  Sender: FDA-Public Use
  Company Number: US-ASTRAZENECA-2013SE47766

PATIENT
  Age: 25 Year
  Sex: Female
  Weight: 72.6 kg

DRUGS (7)
  1. SEROQUEL [Suspect]
     Indication: BIPOLAR DISORDER
     Route: 048
     Dates: start: 201003
  2. SEROQUEL [Suspect]
     Indication: BIPOLAR DISORDER
     Route: 048
     Dates: start: 2010, end: 2011
  3. SEROQUEL [Suspect]
     Indication: BIPOLAR DISORDER
     Route: 048
     Dates: start: 2011
  4. SEROQUEL [Suspect]
     Indication: BIPOLAR DISORDER
     Route: 048
     Dates: start: 201302
  5. WELLBUTRIN [Concomitant]
     Indication: DEPRESSION
     Dates: start: 201107
  6. GABAPENTIN [Concomitant]
     Indication: ANXIETY
     Dates: start: 201302
  7. RITALIN [Concomitant]
     Indication: ATTENTION DEFICIT/HYPERACTIVITY DISORDER
     Dates: start: 201201

REACTIONS (6)
  - Amnesia [Unknown]
  - Memory impairment [Unknown]
  - Dysgraphia [Unknown]
  - Anxiety [Unknown]
  - Drug intolerance [Unknown]
  - Off label use [Unknown]
